FAERS Safety Report 6222127-4 (Version None)
Quarter: 2009Q2

REPORT INFORMATION
  Report Type: 
  Country: None (occurrence: None)
  Receive Date: 20090611
  Receipt Date: 20090601
  Transmission Date: 20091009
  Serious: Yes (Other)
  Sender: FDA-Public Use
  Company Number: AU-ASTRAZENECA-2009SE02273

PATIENT
  Age: 5 Year
  Sex: Female

DRUGS (5)
  1. NEXIUM SACHETS [Suspect]
     Route: 048
     Dates: start: 20090530
  2. NEOCATE POWDER [Concomitant]
  3. IRON SUPPLEMENT [Concomitant]
  4. SINGULAIR [Concomitant]
  5. REDIPRED [Concomitant]

REACTIONS (1)
  - COELIAC DISEASE [None]
